FAERS Safety Report 19126446 (Version 1)
Quarter: 2021Q2

REPORT INFORMATION
  Report Type: Spontaneous
  Country: US (occurrence: US)
  Receive Date: 20210413
  Receipt Date: 20210413
  Transmission Date: 20210717
  Serious: No
  Sender: FDA-Public Use
  Company Number: US-BAYER-2021-121256

PATIENT

DRUGS (1)
  1. MIRALAX [Suspect]
     Active Substance: POLYETHYLENE GLYCOL 3350
     Indication: COLONOSCOPY
     Dosage: UNK, 1 FULL BOTTLE DOSE
     Route: 048

REACTIONS (5)
  - Product use in unapproved indication [Unknown]
  - Incorrect dose administered [Unknown]
  - Product use complaint [None]
  - Off label use [Unknown]
  - Product label issue [None]
